FAERS Safety Report 18363995 (Version 2)
Quarter: 2020Q4

REPORT INFORMATION
  Report Type: Spontaneous
  Country: SG (occurrence: SG)
  Receive Date: 20201009
  Receipt Date: 20201106
  Transmission Date: 20210114
  Serious: Yes (Other)
  Sender: FDA-Public Use
  Company Number: SG-ASTRAZENECA-2020SF28620

PATIENT
  Age: 18175 Day
  Sex: Female
  Weight: 59 kg

DRUGS (2)
  1. ASPIRIN. [Concomitant]
     Active Substance: ASPIRIN
     Route: 048
     Dates: start: 20200310
  2. CRESTOR [Suspect]
     Active Substance: ROSUVASTATIN CALCIUM
     Indication: HYPERLIPIDAEMIA
     Dosage: 5 MG ON HALF TAB OF 10 MG
     Route: 048
     Dates: start: 20200310, end: 20201005

REACTIONS (1)
  - Lipodystrophy acquired [Not Recovered/Not Resolved]

NARRATIVE: CASE EVENT DATE: 20201005
